FAERS Safety Report 18186612 (Version 1)
Quarter: 2020Q3

REPORT INFORMATION
  Report Type: Spontaneous
  Country: US (occurrence: US)
  Receive Date: 20200824
  Receipt Date: 20200824
  Transmission Date: 20201103
  Serious: Yes (Other)
  Sender: FDA-Public Use
  Company Number: None

PATIENT
  Age: 84 Year
  Sex: Female
  Weight: 55.35 kg

DRUGS (14)
  1. LEVOTHYROXINE. [Concomitant]
     Active Substance: LEVOTHYROXINE
  2. METAMUCIL [Concomitant]
     Active Substance: PLANTAGO SEED
  3. BRAFTOVI [Suspect]
     Active Substance: ENCORAFENIB
     Indication: COLON CANCER
     Route: 048
     Dates: start: 20200227, end: 20200824
  4. POTASSIUM CHLORIDE. [Concomitant]
     Active Substance: POTASSIUM CHLORIDE
  5. LIDOCAINE/PRILOCAINE [Concomitant]
     Active Substance: LIDOCAINE\PRILOCAINE
  6. OMEPRAZOLE. [Concomitant]
     Active Substance: OMEPRAZOLE
  7. TIMOLOL. [Concomitant]
     Active Substance: TIMOLOL
  8. ACETAMINOPHEN. [Concomitant]
     Active Substance: ACETAMINOPHEN
  9. ELIQUIS [Concomitant]
     Active Substance: APIXABAN
  10. VITAMIN D [Concomitant]
     Active Substance: VITAMIN D NOS
  11. ESTRADIOL. [Concomitant]
     Active Substance: ESTRADIOL
  12. CYANOCOBALAMIN. [Concomitant]
     Active Substance: CYANOCOBALAMIN
  13. METOPROLOL. [Concomitant]
     Active Substance: METOPROLOL
  14. TRIAMCINOLONE [Concomitant]
     Active Substance: TRIAMCINOLONE

REACTIONS (1)
  - Hospice care [None]

NARRATIVE: CASE EVENT DATE: 20200824
